FAERS Safety Report 9961778 (Version 1)
Quarter: 2014Q1

REPORT INFORMATION
  Report Type: Report from Study
  Country: US (occurrence: US)
  Receive Date: 20140305
  Receipt Date: 20140305
  Transmission Date: 20141002
  Serious: No
  Sender: FDA-Public Use
  Company Number: US-ABBVIE-13P-163-1113317-00

PATIENT
  Age: 48 Year
  Sex: Male

DRUGS (6)
  1. HUMIRA [Suspect]
     Indication: COLITIS ULCERATIVE
     Dates: start: 20130418
  2. LIPITOR [Concomitant]
     Indication: CORONARY ARTERY DISEASE
     Dosage: 4MG DAILY
  3. NIASPAN [Concomitant]
     Indication: CORONARY ARTERY DISEASE
     Dosage: 1000 MG DAILY
  4. LOPRESSOR [Concomitant]
     Indication: CORONARY ARTERY DISEASE
     Dosage: 25MG DAILY
  5. ASPIRIN [Concomitant]
     Indication: CORONARY ARTERY DISEASE
     Dosage: 160 MG DAILY
  6. ASACOL [Concomitant]
     Indication: COLITIS ULCERATIVE
     Dosage: 3

REACTIONS (6)
  - Malaise [Not Recovered/Not Resolved]
  - Nausea [Not Recovered/Not Resolved]
  - Fatigue [Not Recovered/Not Resolved]
  - Injection site swelling [Not Recovered/Not Resolved]
  - Injection site erythema [Not Recovered/Not Resolved]
  - Injection site mass [Not Recovered/Not Resolved]
